FAERS Safety Report 5375370-0 (Version None)
Quarter: 2007Q2

REPORT INFORMATION
  Report Type: 
  Country: None (occurrence: None)
  Receive Date: 20070629
  Receipt Date: 20070621
  Transmission Date: 20071010
  Serious: Yes (Other)
  Sender: FDA-Public Use
  Company Number: BR-PFIZER INC-2006083934

PATIENT
  Sex: Female
  Weight: 54 kg

DRUGS (2)
  1. DEPO-PROVERA SUSPENSION/INJ [Suspect]
     Indication: CONTRACEPTION
     Route: 030
  2. DEPAKENE [Concomitant]
     Indication: BIPOLAR DISORDER
     Route: 065

REACTIONS (6)
  - AMENORRHOEA [None]
  - BLOOD PROLACTIN INCREASED [None]
  - HEADACHE [None]
  - INCREASED APPETITE [None]
  - INFERTILITY [None]
  - WEIGHT INCREASED [None]
